FAERS Safety Report 13439339 (Version 1)
Quarter: 2020Q3

REPORT INFORMATION
  Report Type: Report from Study
  Country: US (occurrence: US)
  Receive Date: 20170413
  Receipt Date: 20170413
  Transmission Date: 20201104
  Serious: Yes (Hospitalization)
  Sender: FDA-Public Use
  Company Number: US-TEVA-760191ACC

PATIENT
  Age: 56 Year
  Sex: Male

DRUGS (13)
  1. POTASSIUM CHLORIDE. [Concomitant]
     Active Substance: POTASSIUM CHLORIDE
     Indication: BLOOD POTASSIUM DECREASED
     Route: 065
     Dates: start: 20160614
  2. POTASSIUM CHLORIDE. [Concomitant]
     Active Substance: POTASSIUM CHLORIDE
     Route: 065
     Dates: start: 20160723, end: 20160723
  3. BENDAMUSTINE HYDROCHLORIDE. [Suspect]
     Active Substance: BENDAMUSTINE HYDROCHLORIDE
     Indication: B-CELL LYMPHOMA
     Dosage: (ON DAYS 2 AND 3 OF CYCLE 1, SUBSEQUENTLY ON DAYS 1 AND 2 OF EACH 28?DAY CYCLEFOR6
     Route: 042
     Dates: start: 20160225
  4. POTASSIUM CHLORIDE. [Concomitant]
     Active Substance: POTASSIUM CHLORIDE
     Route: 065
     Dates: start: 20160727, end: 20160727
  5. POLATUZUMAB VEDOTIN. [Suspect]
     Active Substance: POLATUZUMAB VEDOTIN
     Indication: B-CELL LYMPHOMA
     Dosage: (ON DAY 2 OF CYCLE 1, SUBSEQUENTLY ON DAY 1 OF EACH 21?DAY CYCLE, FOR UP TO 6 CYCL
     Route: 042
     Dates: start: 20160225
  6. MEDROL [Concomitant]
     Active Substance: METHYLPREDNISOLONE
     Indication: DECREASED APPETITE
     Route: 065
     Dates: start: 20160608
  7. POTASSIUM CHLORIDE. [Concomitant]
     Active Substance: POTASSIUM CHLORIDE
     Route: 065
     Dates: start: 20160724, end: 20160724
  8. ZOFRAN [Concomitant]
     Active Substance: ONDANSETRON HYDROCHLORIDE
     Indication: NAUSEA
     Route: 065
     Dates: start: 20160405
  9. POTASSIUM CHLORIDE. [Concomitant]
     Active Substance: POTASSIUM CHLORIDE
     Route: 065
     Dates: start: 20160801, end: 20160801
  10. AMBIEN [Concomitant]
     Active Substance: ZOLPIDEM TARTRATE
     Indication: INSOMNIA
     Route: 065
     Dates: start: 20160405
  11. POTASSIUM CHLORIDE. [Concomitant]
     Active Substance: POTASSIUM CHLORIDE
     Route: 065
     Dates: start: 20160726, end: 20160726
  12. POTASSIUM CHLORIDE. [Concomitant]
     Active Substance: POTASSIUM CHLORIDE
     Route: 065
     Dates: start: 20160730, end: 20160730
  13. RITUXIMAB. [Suspect]
     Active Substance: RITUXIMAB
     Indication: B-CELL LYMPHOMA
     Dosage: (ON DAY 1 OF EACH 21 DAYS CYCLE (FOR UP TO 6 CYCLES))
     Route: 042
     Dates: start: 20160224

REACTIONS (3)
  - Vocal cord paralysis [Not Recovered/Not Resolved]
  - Cerebral toxoplasmosis [Not Recovered/Not Resolved]
  - Pneumonia cytomegaloviral [Not Recovered/Not Resolved]

NARRATIVE: CASE EVENT DATE: 20160720
